FAERS Safety Report 18397562 (Version 6)
Quarter: 2021Q1

REPORT INFORMATION
  Report Type: Spontaneous
  Country: US (occurrence: US)
  Receive Date: 20201019
  Receipt Date: 20210107
  Transmission Date: 20210419
  Serious: No
  Sender: FDA-Public Use
  Company Number: US-009507513-2010USA004579

PATIENT
  Sex: Female
  Weight: 67.76 kg

DRUGS (1)
  1. NEXPLANON [Suspect]
     Active Substance: ETONOGESTREL
     Indication: CONTRACEPTION
     Dosage: 1 ROD Q3 YEARS (FOR THREE YEARS), IN LEFT UPPER ARM (NON DOMINANT); OVER THE TRICEPS MUSCLE; APPROXI
     Route: 059
     Dates: start: 20190604, end: 20201012

REACTIONS (3)
  - Device kink [Recovered/Resolved]
  - Device breakage [Recovered/Resolved]
  - Implant site pain [Unknown]

NARRATIVE: CASE EVENT DATE: 2020
